FAERS Safety Report 21866334 (Version 3)
Quarter: 2023Q2

REPORT INFORMATION
  Report Type: Other
  Country: US (occurrence: None)
  Receive Date: 20230116
  Receipt Date: 20230509
  Transmission Date: 20230722
  Serious: Yes (Hospitalization)
  Sender: FDA-Public Use
  Company Number: US-ROCHE-3259469

PATIENT
  Age: 30 Year
  Sex: Female
  Weight: 136.20 kg

DRUGS (3)
  1. OCREVUS [Suspect]
     Active Substance: OCRELIZUMAB
     Indication: Relapsing-remitting multiple sclerosis
     Dosage: DOT: 4/2/2020, 3/19/2020, 10/30/2020
     Route: 042
     Dates: start: 2018
  2. OXYBUTYNIN [Concomitant]
     Active Substance: OXYBUTYNIN
  3. MACRODANTIN [Concomitant]
     Active Substance: NITROFURANTOIN

REACTIONS (2)
  - COVID-19 [Unknown]
  - Maternal exposure before pregnancy [Unknown]

NARRATIVE: CASE EVENT DATE: 20220201
